FAERS Safety Report 9233382 (Version 2)
Quarter: 2013Q2

REPORT INFORMATION
  Report Type: Spontaneous
  Country: SE (occurrence: SE)
  Receive Date: 20130416
  Receipt Date: 20130514
  Transmission Date: 20140414
  Serious: Yes (Other)
  Sender: FDA-Public Use
  Company Number: SE-PFIZER INC-2013115355

PATIENT
  Age: 31 Year
  Sex: Female

DRUGS (3)
  1. ZOLOFT [Suspect]
     Indication: ANXIETY
     Dosage: 25 MG, 1X/DAY
     Dates: start: 2011
  2. LAMICTAL [Concomitant]
     Dosage: UNK
  3. ABILIFY [Concomitant]
     Dosage: UNK

REACTIONS (1)
  - Nephrolithiasis [Unknown]
